FAERS Safety Report 23879876 (Version 1)
Quarter: 2024Q2

REPORT INFORMATION
  Report Type: Spontaneous
  Country: GB (occurrence: GB)
  Receive Date: 20240521
  Receipt Date: 20240521
  Transmission Date: 20240716
  Serious: Yes (Hospitalization, Other)
  Sender: FDA-Public Use
  Company Number: GB-SANOFI-02041181

PATIENT
  Sex: Female

DRUGS (2)
  1. FUROSEMIDE [Suspect]
     Active Substance: FUROSEMIDE
     Dosage: UNSPECIFIED DOSE AND FREQUENCY, DOSAGE TEXT: UNK
     Route: 065
  2. DILTIAZEM HYDROCHLORIDE [Suspect]
     Active Substance: DILTIAZEM HYDROCHLORIDE
     Dosage: DOSAGE TEXT: UNK (AEGIS PRODUCT NAME: DILTIAZEM HYDROCHLORIDE STRENGTH : 200 MG DEVICE ID: N/A LOT)
     Route: 065

REACTIONS (1)
  - Syncope [Unknown]
